FAERS Safety Report 7764896-8 (Version None)
Quarter: 2011Q3

REPORT INFORMATION
  Report Type: 
  Country: None (occurrence: None)
  Receive Date: 20110921
  Receipt Date: 20110915
  Transmission Date: 20111222
  Serious: Yes (Other)
  Sender: FDA-Public Use
  Company Number: BR-ROCHE-726353

PATIENT
  Sex: Female
  Weight: 87 kg

DRUGS (18)
  1. TOCILIZUMAB [Suspect]
     Route: 042
  2. LOSACOR [Concomitant]
  3. ALENDRONIC ACID [Concomitant]
  4. CALCIUM CARBONATE [Concomitant]
  5. METFORMIN HYDROCHLORIDE [Concomitant]
  6. OMEPRAZOLE [Concomitant]
  7. PANTOPRAZOLE [Concomitant]
  8. TOCILIZUMAB [Suspect]
     Route: 042
     Dates: start: 20100816, end: 20100816
  9. FLUOXETINE [Concomitant]
  10. TOCILIZUMAB [Suspect]
     Indication: RHEUMATOID ARTHRITIS
     Route: 042
     Dates: start: 20100311, end: 20100311
  11. TOCILIZUMAB [Suspect]
     Route: 042
     Dates: start: 20100407, end: 20100407
  12. TOCILIZUMAB [Suspect]
     Route: 042
     Dates: start: 20100507, end: 20100507
  13. TOCILIZUMAB [Suspect]
     Route: 042
     Dates: start: 20100607, end: 20100607
  14. PREDNISONE [Concomitant]
  15. SIMVASTATIN [Concomitant]
  16. TOCILIZUMAB [Suspect]
     Route: 042
     Dates: start: 20100707, end: 20100707
  17. INDAPAMIDE [Concomitant]
  18. AMLODIPINE BESYLATE [Concomitant]

REACTIONS (8)
  - WEIGHT INCREASED [None]
  - INFLUENZA [None]
  - DYSLIPIDAEMIA [None]
  - ARTHRALGIA [None]
  - BRONCHITIS [None]
  - DIABETES MELLITUS [None]
  - NASOPHARYNGITIS [None]
  - SINUSITIS [None]
